FAERS Safety Report 18796645 (Version 2)
Quarter: 2021Q1

REPORT INFORMATION
  Report Type: Spontaneous
  Country: JP (occurrence: JP)
  Receive Date: 20210128
  Receipt Date: 20210208
  Transmission Date: 20210419
  Serious: Yes (Hospitalization, Disabling)
  Sender: FDA-Public Use
  Company Number: NVSJ2021JP001249

PATIENT
  Age: 57 Year
  Sex: Female

DRUGS (4)
  1. RIFAMPICIN CAPSULES [Suspect]
     Active Substance: RIFAMPIN
     Indication: ATYPICAL MYCOBACTERIAL PNEUMONIA
     Dosage: 450 MG
     Route: 048
     Dates: start: 20201122, end: 20201124
  2. CLARITHROMYCIN. [Concomitant]
     Active Substance: CLARITHROMYCIN
     Indication: ATYPICAL MYCOBACTERIAL PNEUMONIA
     Dosage: 400 MG, BID
     Route: 048
     Dates: start: 20201028, end: 20201124
  3. ESANBUTOL [Concomitant]
     Active Substance: ETHAMBUTOL HYDROCHLORIDE
     Indication: ATYPICAL MYCOBACTERIAL PNEUMONIA
     Dosage: 500 MG
     Route: 048
     Dates: start: 20201028, end: 20201124
  4. RIFADIN [Suspect]
     Active Substance: RIFAMPIN
     Indication: ATYPICAL MYCOBACTERIAL PNEUMONIA
     Dosage: 450 MG
     Route: 048
     Dates: start: 20201111, end: 20201122

REACTIONS (6)
  - Haemorrhage [Unknown]
  - Pyrexia [Unknown]
  - Haematoma muscle [Recovered/Resolved with Sequelae]
  - Haemophagocytic lymphohistiocytosis [Recovered/Resolved]
  - Full blood count decreased [Unknown]
  - Muscle haemorrhage [Recovered/Resolved with Sequelae]

NARRATIVE: CASE EVENT DATE: 20201120
